FAERS Safety Report 15601618 (Version 2)
Quarter: 2022Q4

REPORT INFORMATION
  Report Type: Other
  Country: PL (occurrence: PL)
  Receive Date: 20181109
  Receipt Date: 20221021
  Transmission Date: 20230113
  Serious: Yes (Other)
  Sender: FDA-Public Use
  Company Number: PL-ROCHE-2202408

PATIENT

DRUGS (2)
  1. LEUKERAN [Suspect]
     Active Substance: CHLORAMBUCIL
     Indication: Chronic lymphocytic leukaemia
     Route: 065
  2. OBINUTUZUMAB [Suspect]
     Active Substance: OBINUTUZUMAB
     Indication: Chronic lymphocytic leukaemia
     Dosage: FIRST ADMINISTRATION
     Route: 042
     Dates: start: 20180731, end: 20180731

REACTIONS (3)
  - Acute hepatic failure [Recovering/Resolving]
  - White blood cell count decreased [Recovered/Resolved]
  - Transaminases increased [Recovered/Resolved]

NARRATIVE: CASE EVENT DATE: 20180801
